FAERS Safety Report 8974995 (Version 2)
Quarter: 2013Q1

REPORT INFORMATION
  Report Type: Spontaneous
  Country: US (occurrence: US)
  Receive Date: 20121220
  Receipt Date: 20130318
  Transmission Date: 20140127
  Serious: Yes (Hospitalization)
  Sender: FDA-Public Use
  Company Number: US-BAYER-2012-132461

PATIENT
  Age: 18 Year
  Sex: Female
  Weight: 68.48 kg

DRUGS (1)
  1. YAZ [Suspect]
     Dosage: UNK
     Dates: start: 20070501, end: 20071030

REACTIONS (4)
  - Deep vein thrombosis [None]
  - Thrombosis [None]
  - Post thrombotic syndrome [None]
  - Mental disorder [None]
